FAERS Safety Report 5156764-5 (Version None)
Quarter: 2006Q4

REPORT INFORMATION
  Report Type: 
  Country: None (occurrence: None)
  Receive Date: 20061115
  Receipt Date: 20061103
  Transmission Date: 20070319
  Serious: Yes (Other)
  Sender: FDA-Public Use
  Company Number: 2006138925

PATIENT
  Sex: Male

DRUGS (3)
  1. FLURBIPROFEN [Suspect]
     Indication: INTERVERTEBRAL DISC PROTRUSION
     Dosage: (100 MG), ORAL
     Route: 048
  2. CIPROFLOXACIN [Concomitant]
  3. NITROFURANTOIN [Concomitant]

REACTIONS (4)
  - DIZZINESS [None]
  - HYPOTENSION [None]
  - LOSS OF CONSCIOUSNESS [None]
  - VOMITING [None]
